FAERS Safety Report 4675612-0 (Version None)
Quarter: 2005Q2

REPORT INFORMATION
  Report Type: 
  Country: None (occurrence: None)
  Receive Date: 20050527
  Receipt Date: 20050428
  Transmission Date: 20051028
  Serious: No
  Sender: FDA-Public Use
  Company Number: US-BRISTOL-MYERS SQUIBB COMPANY-12949624

PATIENT
  Age: 33 Year
  Sex: Female
  Weight: 73 kg

DRUGS (4)
  1. ABILIFY [Suspect]
     Indication: DEPRESSION
     Dates: start: 20040201
  2. ABILIFY [Suspect]
     Indication: ANXIETY
     Dates: start: 20040201
  3. ABILIFY [Suspect]
     Indication: SOMNOLENCE
     Dates: start: 20040201
  4. LEXAPRO [Concomitant]
     Dates: end: 20050423

REACTIONS (5)
  - HYPERHIDROSIS [None]
  - NAUSEA [None]
  - PREGNANCY [None]
  - TREMOR [None]
  - VOMITING [None]
